FAERS Safety Report 25926828 (Version 1)
Quarter: 2025Q4

REPORT INFORMATION
  Report Type: Spontaneous
  Country: US (occurrence: None)
  Receive Date: 20251015
  Receipt Date: 20251015
  Transmission Date: 20260118
  Serious: Yes (Hospitalization)
  Sender: FDA-CTU
  Company Number: None

PATIENT
  Age: 63 Year
  Sex: Female

DRUGS (1)
  1. COSENTYX [Suspect]
     Active Substance: SECUKINUMAB
     Indication: Psoriasis
     Dosage: INJECTE 300MG (2 PEN)2 SUBCUTANEOUSLY ONCE WEEK FOR 5 WEEKS AS DIRECTED
     Route: 058

REACTIONS (3)
  - Pneumonia [None]
  - Sepsis [None]
  - Clostridium difficile infection [None]

NARRATIVE: CASE EVENT DATE: 20250915
